FAERS Safety Report 5305145-X (Version None)
Quarter: 2007Q2

REPORT INFORMATION
  Report Type: 
  Country: None (occurrence: None)
  Receive Date: 20070417
  Receipt Date: 20070402
  Transmission Date: 20071010
  Serious: Yes (Hospitalization)
  Sender: FDA-Public Use
  Company Number: 2007SI002860

PATIENT
  Sex: Female

DRUGS (5)
  1. NITROFURANTOIN MONOHYDRATE/MACROCRYSTALS [Suspect]
     Indication: CYSTITIS
     Dosage: 100 MG; ORAL, 100 MG; ORAL
     Route: 048
     Dates: start: 20061101, end: 20061201
  2. NITROFURANTOIN MONOHYDRATE/MACROCRYSTALS [Suspect]
     Indication: CYSTITIS
     Dosage: 100 MG; ORAL, 100 MG; ORAL
     Route: 048
     Dates: start: 20070201, end: 20070201
  3. LEVOTHYROXINE SODIUM [Concomitant]
  4. PANTOPRAZOLE [Concomitant]
  5. ALENDRONATE SODIUM [Concomitant]

REACTIONS (11)
  - CHILLS [None]
  - COUGH [None]
  - CYSTITIS [None]
  - DEHYDRATION [None]
  - DRUG INEFFECTIVE [None]
  - ERYTHEMA [None]
  - EYE SWELLING [None]
  - FATIGUE [None]
  - RASH PRURITIC [None]
  - SWELLING FACE [None]
  - SYNCOPE [None]
